FAERS Safety Report 7743947-0 (Version None)
Quarter: 2011Q3

REPORT INFORMATION
  Report Type: 
  Country: None (occurrence: None)
  Receive Date: 20110912
  Receipt Date: 20110902
  Transmission Date: 20111222
  Serious: Yes (Other)
  Sender: FDA-Public Use
  Company Number: FR-GLAXOSMITHKLINE-B0744191A

PATIENT
  Sex: Female

DRUGS (7)
  1. RABEPRAZOLE SODIUM [Suspect]
     Indication: PRODUCT USED FOR UNKNOWN INDICATION
  2. MEDIATOR [Suspect]
     Indication: OVERWEIGHT
     Dosage: 1UNIT TWICE PER DAY
     Route: 048
     Dates: start: 20060103, end: 20091230
  3. LEVOTHYROXINE SODIUM [Suspect]
     Indication: PRODUCT USED FOR UNKNOWN INDICATION
     Dosage: 150MCG PER DAY
     Dates: start: 20080701
  4. SERETIDE [Suspect]
     Indication: ASTHMA
     Route: 055
     Dates: start: 19980101
  5. PROZAC [Suspect]
     Indication: PRODUCT USED FOR UNKNOWN INDICATION
     Route: 048
     Dates: start: 20060201
  6. ISOMERIDE [Suspect]
     Indication: PRODUCT USED FOR UNKNOWN INDICATION
  7. EBASTINE [Suspect]
     Indication: PRODUCT USED FOR UNKNOWN INDICATION

REACTIONS (3)
  - DYSPNOEA EXERTIONAL [None]
  - PULMONARY HYPERTENSION [None]
  - MITRAL VALVE INCOMPETENCE [None]
